FAERS Safety Report 4615909-3 (Version None)
Quarter: 2005Q1

REPORT INFORMATION
  Report Type: 
  Country: None (occurrence: None)
  Receive Date: 20050318
  Receipt Date: 20050311
  Transmission Date: 20050727
  Serious: No
  Sender: FDA-Public Use
  Company Number: 2005AP01688

PATIENT
  Age: 50 Year
  Sex: Female

DRUGS (1)
  1. DIPRIVAN [Suspect]
     Indication: GENERAL ANAESTHESIA
     Dates: start: 20050307, end: 20050307

REACTIONS (3)
  - OXYGEN SATURATION DECREASED [None]
  - PO2 DECREASED [None]
  - PULMONARY EMBOLISM [None]
